FAERS Safety Report 8050354-2 (Version None)
Quarter: 2011Q4

REPORT INFORMATION
  Report Type: 
  Country: None (occurrence: None)
  Receive Date: 20111229
  Receipt Date: 20111216
  Transmission Date: 20120403
  Serious: Yes (Death)
  Sender: FDA-Public Use
  Company Number: 2011PROUSA00782

PATIENT
  Age: 87 Year
  Sex: Male

DRUGS (4)
  1. PROVENGE [Suspect]
     Indication: PROSTATE CANCER METASTATIC
     Dosage: 250 ML, SINGLE, INTRAVENOUS
     Route: 042
     Dates: start: 20111027, end: 20111027
  2. PROVENGE [Suspect]
     Dosage: 250 ML, SINGLE, INTRAVENOUS
     Route: 042
     Dates: start: 20111110, end: 20111110
  3. BENADRYL [Concomitant]
  4. TYLENOL /00020001/ (PARACETAMOL) [Concomitant]

REACTIONS (1)
  - DEATH [None]
